FAERS Safety Report 7730829-3 (Version None)
Quarter: 2011Q3

REPORT INFORMATION
  Report Type: 
  Country: None (occurrence: None)
  Receive Date: 20110831
  Receipt Date: 20110816
  Transmission Date: 20111222
  Serious: Yes (Life-Threatening)
  Sender: FDA-Public Use
  Company Number: 2011187865

PATIENT
  Age: 34 Year
  Sex: Female

DRUGS (4)
  1. GEMTUZUMAB OZOGAMICIN (GEMTUZUMAB OZOGAMICIN) [Suspect]
     Indication: ACUTE MYELOID LEUKAEMIA
     Dosage: 9.2 MG, 1X/DAY, INTRAVENOUS
     Route: 042
     Dates: start: 20090220, end: 20090220
  2. CERUBIDINE [Suspect]
     Indication: ACUTE MYELOID LEUKAEMIA
     Dosage: 90 MG, 1X/DAY, INTRAVENOUS
     Route: 042
     Dates: end: 20090306
  3. CYTARABINE [Suspect]
     Indication: ACUTE MYELOID LEUKAEMIA
     Dosage: 300 MG, 1X/DAY, INTRAVENOUS
     Route: 042
     Dates: start: 20090217, end: 20090223
  4. HEPARIN [Suspect]
     Dates: end: 20090306

REACTIONS (4)
  - SHOCK HAEMORRHAGIC [None]
  - GASTROINTESTINAL HAEMORRHAGE [None]
  - FULL BLOOD COUNT ABNORMAL [None]
  - GASTROINTESTINAL ANGIODYSPLASIA [None]
